FAERS Safety Report 12884625 (Version 2)
Quarter: 2016Q4

REPORT INFORMATION
  Report Type: Spontaneous
  Country: IT (occurrence: IT)
  Receive Date: 20161026
  Receipt Date: 20161230
  Transmission Date: 20170207
  Serious: Yes (Other)
  Sender: FDA-Public Use
  Company Number: PHHY2016IT144664

PATIENT
  Age: 30 Year
  Sex: Male

DRUGS (1)
  1. GILENYA [Suspect]
     Active Substance: FINGOLIMOD HYDROCHLORIDE
     Indication: RELAPSING-REMITTING MULTIPLE SCLEROSIS
     Dosage: 0.5 MG, QD
     Route: 048
     Dates: start: 201207, end: 201606

REACTIONS (9)
  - Paraesthesia [Unknown]
  - Vertigo [Unknown]
  - Hyperbilirubinaemia [Unknown]
  - Central nervous system lesion [Unknown]
  - Visual acuity reduced [Recovered/Resolved]
  - Granuloma [Not Recovered/Not Resolved]
  - Muscle rigidity [Unknown]
  - Musculoskeletal stiffness [Unknown]
  - Dizziness [Unknown]

NARRATIVE: CASE EVENT DATE: 201307
